FAERS Safety Report 5645925-4 (Version None)
Quarter: 2008Q1

REPORT INFORMATION
  Report Type: 
  Country: None (occurrence: None)
  Receive Date: 20080131
  Receipt Date: 20071210
  Transmission Date: 20080703
  Serious: No
  Sender: FDA-Public Use
  Company Number: 163-21880-07120603

PATIENT
  Age: 82 Year
  Sex: Female

DRUGS (2)
  1. REVLIMID [Suspect]
     Indication: MYELODYSPLASTIC SYNDROME
     Dosage: 5 MG, 1 IN 1 D, ORAL ; 5-10MG, DAILY, ORAL
     Route: 048
     Dates: start: 20061026, end: 20061201
  2. REVLIMID [Suspect]
     Indication: MYELODYSPLASTIC SYNDROME
     Dosage: 5 MG, 1 IN 1 D, ORAL ; 5-10MG, DAILY, ORAL
     Route: 048
     Dates: start: 20071207

REACTIONS (2)
  - ATAXIA [None]
  - INFECTION [None]
